FAERS Safety Report 23521165 (Version 1)
Quarter: 2024Q1

REPORT INFORMATION
  Report Type: 
  Country: None (occurrence: None)
  Receive Date: 20240214
  Receipt Date: 20240214
  Transmission Date: 20240409
  Serious: No
  Sender: FDA-Public Use
  Company Number: GB-ROCHE-3247867

PATIENT

DRUGS (2)
  1. TOCILIZUMAB [Suspect]
     Active Substance: TOCILIZUMAB
     Dates: start: 20221213
  2. TOCILIZUMAB [Suspect]
     Active Substance: TOCILIZUMAB
     Dates: start: 202212

REACTIONS (9)
  - Shoulder fracture [None]
  - Lower respiratory tract infection [None]
  - Pneumonia [None]
  - Lower respiratory tract infection [None]
  - Arthralgia [None]
  - Musculoskeletal disorder [None]
  - Pain [None]
  - Wound [None]
  - Cough [None]
